FAERS Safety Report 9203825 (Version 1)
Quarter: 2013Q1

REPORT INFORMATION
  Report Type: Spontaneous
  Country: GB (occurrence: None)
  Receive Date: 20130329
  Receipt Date: 20130329
  Transmission Date: 20140127
  Serious: Yes (Hospitalization)
  Sender: FDA-Public Use
  Company Number: 08-AUR-05683

PATIENT
  Age: 50 Year
  Sex: Male

DRUGS (2)
  1. FLUOXETINE (FLUOXETINE) [Suspect]
     Indication: DEPRESSION
     Dates: start: 20060530, end: 20060620
  2. ANADIN [Suspect]
     Indication: ARTHRALGIA
     Route: 048
     Dates: start: 20060401, end: 20060501

REACTIONS (5)
  - Duodenal ulcer [None]
  - Gastritis erosive [None]
  - Melaena [None]
  - Haematemesis [None]
  - Gastric ulcer [None]
